FAERS Safety Report 20509976 (Version 2)
Quarter: 2022Q2

REPORT INFORMATION
  Report Type: Spontaneous
  Country: FR (occurrence: None)
  Receive Date: 20220224
  Receipt Date: 20220415
  Transmission Date: 20220721
  Serious: Yes (Death)
  Sender: FDA-Public Use
  Company Number: FR-ROCHE-3026704

PATIENT
  Age: 53 Year
  Sex: Female
  Weight: 52 kg

DRUGS (1)
  1. OCREVUS [Suspect]
     Active Substance: OCRELIZUMAB
     Indication: Relapsing multiple sclerosis
     Route: 042
     Dates: start: 20201022, end: 20211109

REACTIONS (2)
  - Metastases to lung [Fatal]
  - Metastases to bone [Fatal]

NARRATIVE: CASE EVENT DATE: 20211221
